FAERS Safety Report 6247145-1 (Version None)
Quarter: 2009Q2

REPORT INFORMATION
  Report Type: 
  Country: None (occurrence: None)
  Receive Date: 20090624
  Receipt Date: 20090624
  Transmission Date: 20091009
  Serious: Yes (Other)
  Sender: FDA-Public Use
  Company Number: None

PATIENT
  Sex: Male
  Weight: 147 kg

DRUGS (1)
  1. PROLEUKIN [Suspect]
     Indication: RENAL CANCER METASTATIC
     Dosage: 88.2 MIU EVERY 8 HOURS IV BOLUS
     Route: 040
     Dates: start: 20090615, end: 20090619

REACTIONS (4)
  - FATIGUE [None]
  - HYPOGLYCAEMIA [None]
  - HYPOTENSION [None]
  - PYREXIA [None]
